FAERS Safety Report 25723964 (Version 1)
Quarter: 2025Q3

REPORT INFORMATION
  Report Type: Spontaneous
  Country: CH (occurrence: CH)
  Receive Date: 20250825
  Receipt Date: 20250825
  Transmission Date: 20251021
  Serious: Yes (Hospitalization, Other)
  Sender: BRISTOL-MYERS SQUIBB COMPANY
  Company Number: None

PATIENT
  Age: 79 Year
  Sex: Male
  Weight: 81.8 kg

DRUGS (6)
  1. YERVOY [Suspect]
     Active Substance: IPILIMUMAB
     Indication: Pleural mesothelioma
     Dosage: LAST DOSE, ACCORDING TO THE INFORMATION ON THE THERAPY CYCLE, PROBABLY AT THE END OF JUNE/BEGINNING
     Route: 042
     Dates: start: 202504
  2. OPDIVO [Suspect]
     Active Substance: NIVOLUMAB
     Indication: Pleural mesothelioma
     Dosage: LAST DOSE, ACCORDING TO THE INFORMATION ON THE THERAPY CYCLE, PROBABLY AT THE END OF JUNE/BEGINNING
     Route: 042
     Dates: start: 202504
  3. LERCANIDIPINE HYDROCHLORIDE [Concomitant]
     Active Substance: LERCANIDIPINE HYDROCHLORIDE
     Indication: Product used for unknown indication
  4. OLMESARTAN MEDOXOMIL [Concomitant]
     Active Substance: OLMESARTAN MEDOXOMIL
     Indication: Product used for unknown indication
  5. TAMSULOSIN HYDROCHLORIDE [Concomitant]
     Active Substance: TAMSULOSIN HYDROCHLORIDE
     Indication: Product used for unknown indication
  6. TORSEMIDE [Concomitant]
     Active Substance: TORSEMIDE
     Indication: Product used for unknown indication

REACTIONS (7)
  - Immune-mediated hypophysitis [Recovering/Resolving]
  - Eosinophilia [Recovered/Resolved]
  - Secondary adrenocortical insufficiency [Recovering/Resolving]
  - Femoral neck fracture [Unknown]
  - Pneumonia [Unknown]
  - Cardiac failure acute [Unknown]
  - Cor pulmonale [Unknown]

NARRATIVE: CASE EVENT DATE: 20250701
